FAERS Safety Report 6200510-0 (Version None)
Quarter: 2009Q2

REPORT INFORMATION
  Report Type: 
  Country: None (occurrence: None)
  Receive Date: 20090522
  Receipt Date: 20090512
  Transmission Date: 20091009
  Serious: Yes (Other)
  Sender: FDA-Public Use
  Company Number: GB-AMGEN-US337691

PATIENT
  Sex: Female
  Weight: 90 kg

DRUGS (11)
  1. ENBREL [Suspect]
     Indication: RHEUMATOID ARTHRITIS
     Route: 058
     Dates: start: 20060821
  2. TRAMADOL HCL [Concomitant]
     Dosage: UNKNOWN
     Route: 065
  3. SULFASALAZINE [Concomitant]
     Dosage: UNKNOWN
     Route: 065
  4. AZATHIOPRINE [Concomitant]
     Dosage: UNKNOWN
     Route: 065
     Dates: end: 20040615
  5. CALCICHEW [Concomitant]
     Route: 065
  6. GAVISCON [Concomitant]
     Route: 065
  7. HYDROXYCHLOROQUINE SULFATE [Concomitant]
     Dosage: UNKNOWN
     Route: 065
  8. NAPROXEN [Concomitant]
     Dosage: UNKNOWN
  9. PREDNISOLONE [Concomitant]
     Route: 065
  10. PREDNISOLONE [Concomitant]
     Dosage: UNKNOWN
  11. METHOTREXATE [Concomitant]
     Route: 065

REACTIONS (1)
  - MYELODYSPLASTIC SYNDROME [None]
